FAERS Safety Report 8862579 (Version 1)
Quarter: 2012Q4

REPORT INFORMATION
  Report Type: 
  Country: CN (occurrence: CN)
  Receive Date: 20121026
  Receipt Date: 20121026
  Transmission Date: 20130627
  Serious: Yes (Death)
  Sender: FDA-Public Use
  Company Number: CN-BAYER-2012-112691

PATIENT
  Age: 90 Year
  Sex: Male

DRUGS (3)
  1. ULTRAVIST 370 [Suspect]
     Indication: CT SCAN
     Dosage: 60 ml, ONCE
     Route: 042
     Dates: start: 20121018, end: 20121018
  2. MEMANTINE [Concomitant]
     Indication: DEMENTIA
  3. FINASTERIDE [Concomitant]
     Indication: BENIGN PROSTATIC HYPERPLASIA
     Dosage: UNK
     Dates: start: 2006

REACTIONS (7)
  - Anaphylactic shock [Fatal]
  - Chest discomfort [Fatal]
  - Hyperhidrosis [Fatal]
  - Dyspnoea [Fatal]
  - Oral discharge [Fatal]
  - Mydriasis [Fatal]
  - Coma [Fatal]
